FAERS Safety Report 7132147-3 (Version None)
Quarter: 2010Q4

REPORT INFORMATION
  Report Type: 
  Country: None (occurrence: None)
  Receive Date: 20101124
  Receipt Date: 20101124
  Transmission Date: 20110411
  Serious: Yes (Other)
  Sender: FDA-Public Use
  Company Number: None

PATIENT

DRUGS (1)
  1. FINASTERIDE [Suspect]
     Dates: start: 20060901, end: 20100901

REACTIONS (3)
  - BLOOD OESTROGEN INCREASED [None]
  - ERECTILE DYSFUNCTION [None]
  - OFF LABEL USE [None]
